FAERS Safety Report 22151259 (Version 1)
Quarter: 2023Q1

REPORT INFORMATION
  Report Type: Spontaneous
  Country: CN (occurrence: CN)
  Receive Date: 20230329
  Receipt Date: 20230329
  Transmission Date: 20230417
  Serious: Yes (Other)
  Sender: FDA-Public Use
  Company Number: CN-BAYER-2023A038377

PATIENT
  Age: 25 Year
  Sex: Male

DRUGS (1)
  1. ULTRAVIST [Suspect]
     Active Substance: IOPROMIDE
     Dosage: UNK UNK, ONCE
     Dates: start: 20230321, end: 20230321

REACTIONS (6)
  - Eyelid oedema [None]
  - Urticaria [None]
  - Vision blurred [None]
  - Skin turgor decreased [None]
  - Conjunctival oedema [None]
  - Heart rate decreased [None]

NARRATIVE: CASE EVENT DATE: 20230321
